FAERS Safety Report 7525639-6 (Version None)
Quarter: 2011Q2

REPORT INFORMATION
  Report Type: 
  Country: None (occurrence: None)
  Receive Date: 20110606
  Receipt Date: 20110523
  Transmission Date: 20111010
  Serious: Yes (Other)
  Sender: FDA-Public Use
  Company Number: PHHY2011US44495

PATIENT
  Sex: Female

DRUGS (1)
  1. FEMARA [Suspect]
     Dosage: 2.5 MG, DAILY
     Route: 048
     Dates: start: 20011225

REACTIONS (5)
  - BALANCE DISORDER [None]
  - POSTURE ABNORMAL [None]
  - FALL [None]
  - UPPER LIMB FRACTURE [None]
  - HEAD INJURY [None]
